FAERS Safety Report 7269445-9 (Version None)
Quarter: 2011Q1

REPORT INFORMATION
  Report Type: 
  Country: None (occurrence: None)
  Receive Date: 20110202
  Receipt Date: 20110119
  Transmission Date: 20110831
  Serious: Yes (Hospitalization)
  Sender: FDA-Public Use
  Company Number: US-ELI_LILLY_AND_COMPANY-US201009004747

PATIENT
  Sex: Female

DRUGS (5)
  1. MULTI-VITAMIN [Concomitant]
  2. FORTEO [Suspect]
     Indication: OSTEOPOROSIS
     Dosage: 20 UG, DAILY (1/D)
     Dates: start: 20100701
  3. BENICAR [Concomitant]
  4. SYNTHROID [Concomitant]
  5. METOPROLOL [Concomitant]

REACTIONS (5)
  - NEPHROLITHIASIS [None]
  - PAIN IN EXTREMITY [None]
  - ASTHENIA [None]
  - PAIN [None]
  - HAEMORRHAGE URINARY TRACT [None]
